FAERS Safety Report 8118297-3 (Version None)
Quarter: 2012Q1

REPORT INFORMATION
  Report Type: 
  Country: None (occurrence: None)
  Receive Date: 20120207
  Receipt Date: 20120206
  Transmission Date: 20120608
  Serious: Yes (Death)
  Sender: FDA-Public Use
  Company Number: US-B.I. PHARMACEUTICALS,INC./RIDGEFIELD-2012-BP-02248BP

PATIENT
  Sex: Male

DRUGS (8)
  1. ALBUTEROL [Concomitant]
     Indication: CHRONIC OBSTRUCTIVE PULMONARY DISEASE
     Route: 055
  2. FLOMAX [Concomitant]
     Indication: PROSTATIC DISORDER
     Route: 048
  3. VITAMIN D [Concomitant]
     Indication: SUPPLEMENTATION THERAPY
  4. VITAMIN B COMPLEX CAP [Concomitant]
     Indication: SUPPLEMENTATION THERAPY
  5. SPIRIVA [Suspect]
     Indication: CHRONIC OBSTRUCTIVE PULMONARY DISEASE
     Dosage: 18 MCG
     Route: 055
     Dates: start: 20090101
  6. CARDIZEM [Concomitant]
     Indication: CARDIAC DISORDER
     Route: 048
  7. SINGULAIR [Concomitant]
     Route: 048
  8. LASIX [Concomitant]
     Indication: CARDIAC DISORDER

REACTIONS (1)
  - DEATH [None]
